FAERS Safety Report 7418556-3 (Version None)
Quarter: 2011Q2

REPORT INFORMATION
  Report Type: 
  Country: None (occurrence: None)
  Receive Date: 20110415
  Receipt Date: 20110405
  Transmission Date: 20111010
  Serious: Yes (Other)
  Sender: FDA-Public Use
  Company Number: PHHY2011US28449

PATIENT
  Sex: Male

DRUGS (7)
  1. CELEBREX [Concomitant]
  2. PRILOSEC [Concomitant]
  3. ACETAMINOPHEN [Concomitant]
  4. PRAZOSIN HCL [Concomitant]
     Dosage: 5 MG, UNK
  5. CALCIUM [Concomitant]
  6. AMLODIPINE [Concomitant]
     Dosage: 10 MG, UNK
  7. DIOVAN [Suspect]
     Dosage: 160 MG, UNK

REACTIONS (3)
  - STAPHYLOCOCCAL INFECTION [None]
  - OEDEMA PERIPHERAL [None]
  - RENAL IMPAIRMENT [None]
